FAERS Safety Report 13681002 (Version 1)
Quarter: 2017Q2

REPORT INFORMATION
  Report Type: Spontaneous
  Country: US (occurrence: US)
  Receive Date: 20170622
  Receipt Date: 20170622
  Transmission Date: 20170830
  Serious: Yes (Hospitalization)
  Sender: FDA-Public Use
  Company Number: None

PATIENT
  Age: 72 Year
  Sex: Male
  Weight: 107.91 kg

DRUGS (1)
  1. BACLOFEN. [Suspect]
     Active Substance: BACLOFEN
     Indication: PAIN
     Route: 048
     Dates: start: 20170224, end: 20170226

REACTIONS (2)
  - Delirium [None]
  - Confusional state [None]

NARRATIVE: CASE EVENT DATE: 20170226
